FAERS Safety Report 9849686 (Version 1)
Quarter: 2013Q4

REPORT INFORMATION
  Report Type: Spontaneous
  Country: US (occurrence: None)
  Receive Date: 20131226
  Receipt Date: 20131226
  Transmission Date: 20140711
  Serious: Yes (Other)
  Sender: FDA-Public Use
  Company Number: PHEH2013US013497

PATIENT
  Age: 58 Year
  Sex: Female

DRUGS (3)
  1. RECLAST (ZOLEDRONATE) SOLUTION FOR INJECTION [Suspect]
     Route: 042
     Dates: start: 20130320
  2. AZATHIOPRINE (AZATHIOPRINE) [Concomitant]
  3. ALLEGRA-D [Concomitant]

REACTIONS (6)
  - Vomiting [None]
  - Feeling cold [None]
  - Fatigue [None]
  - Pain [None]
  - Tremor [None]
  - Malaise [None]
